FAERS Safety Report 17881485 (Version 1)
Quarter: 2020Q2

REPORT INFORMATION
  Report Type: Spontaneous
  Country: US (occurrence: US)
  Receive Date: 20200610
  Receipt Date: 20200610
  Transmission Date: 20200714
  Serious: No
  Sender: FDA-Public Use
  Company Number: US-COLLEGIUM PHARMACEUTICAL, INC.-2020CGM00048

PATIENT
  Age: 35 Year
  Sex: Male
  Weight: 87.08 kg

DRUGS (13)
  1. IBUPROFEN. [Concomitant]
     Active Substance: IBUPROFEN
  2. ZYRTEC [Concomitant]
     Active Substance: CETIRIZINE HYDROCHLORIDE
     Dosage: 10 MG, 2X/DAY
  3. GABAPENTIN. [Concomitant]
     Active Substance: GABAPENTIN
     Dosage: 900 MG, 4X/DAY
  4. FLONASE [Concomitant]
     Active Substance: FLUTICASONE PROPIONATE
  5. ^STIMULANTS^ UNSPECIFIED [Suspect]
     Active Substance: UNSPECIFIED INGREDIENT
     Indication: NARCOLEPSY
     Dosage: UNK
  6. VYVANSE [Concomitant]
     Active Substance: LISDEXAMFETAMINE DIMESYLATE
  7. DEXTROSTAT [Concomitant]
     Active Substance: DEXTROAMPHETAMINE SULFATE
     Dosage: 10 MG, 3X/DAY
  8. CLONAZEPAM. [Concomitant]
     Active Substance: CLONAZEPAM
     Dosage: 0.25 MG AT NIGHT
  9. LYRICA [Concomitant]
     Active Substance: PREGABALIN
     Dosage: 225 MG, 2X/DAY
  10. MEDICAL MARIJUANA [Concomitant]
     Active Substance: CANNABIS SATIVA SUBSP. INDICA TOP
  11. XTAMPZA ER [Suspect]
     Active Substance: OXYCODONE
     Indication: PAIN
     Dosage: 13.5 MG, 2X/DAY ^EVERY 12 HOURS^
     Route: 048
     Dates: start: 20200212, end: 20200218
  12. BUDESONIDE. [Concomitant]
     Active Substance: BUDESONIDE
  13. TYLENOL [Concomitant]
     Active Substance: ACETAMINOPHEN

REACTIONS (9)
  - Hypersensitivity [Recovering/Resolving]
  - Pain [Recovered/Resolved]
  - Reaction to excipient [Recovering/Resolving]
  - Hyperhidrosis [Recovered/Resolved]
  - Throat irritation [Recovering/Resolving]
  - Gastrointestinal disorder [Recovered/Resolved]
  - Drug interaction [Recovered/Resolved]
  - Swelling face [Recovering/Resolving]
  - Therapeutic product effect decreased [Recovered/Resolved]

NARRATIVE: CASE EVENT DATE: 202002
